FAERS Safety Report 7475679-0 (Version None)
Quarter: 2011Q2

REPORT INFORMATION
  Report Type: 
  Country: None (occurrence: None)
  Receive Date: 20110512
  Receipt Date: 20110504
  Transmission Date: 20111010
  Serious: Yes (Hospitalization, Other)
  Sender: FDA-Public Use
  Company Number: NL-ROCHE-773891

PATIENT
  Sex: Male

DRUGS (7)
  1. CISPLATIN [Suspect]
     Indication: METASTATIC GASTRIC CANCER
     Route: 042
     Dates: start: 20110405
  2. PRIMPERAN TAB [Concomitant]
     Dates: start: 20110405
  3. CAPECITABINE [Suspect]
     Route: 048
     Dates: start: 20110415
  4. BMS-833923 [Suspect]
     Route: 048
     Dates: start: 20110415
  5. CAPECITABINE [Suspect]
     Indication: METASTATIC GASTRIC CANCER
     Route: 048
     Dates: start: 20110405, end: 20110413
  6. BMS-833923 [Suspect]
     Indication: METASTATIC GASTRIC CANCER
     Route: 048
     Dates: start: 20110322, end: 20110413
  7. ONDANSETRON [Concomitant]
     Dates: start: 20110405

REACTIONS (2)
  - LIPASE INCREASED [None]
  - NAUSEA [None]
